FAERS Safety Report 12495969 (Version 1)
Quarter: 2016Q2

REPORT INFORMATION
  Report Type: Spontaneous
  Country: US (occurrence: US)
  Receive Date: 20160624
  Receipt Date: 20160624
  Transmission Date: 20160815
  Serious: No
  Sender: FDA-Public Use
  Company Number: US-BAUSCH-BL-2016-008694

PATIENT
  Age: 73 Year
  Sex: Female
  Weight: 68.1 kg

DRUGS (1)
  1. JUBLIA [Suspect]
     Active Substance: EFINACONAZOLE
     Indication: ONYCHOMYCOSIS
     Dosage: 17 MONTH AGO THE PATIENT STARTED THE TREATMENT.
     Route: 061

REACTIONS (1)
  - Drug ineffective [Unknown]
